FAERS Safety Report 8974117 (Version 1)
Quarter: 2012Q4

REPORT INFORMATION
  Report Type: Spontaneous
  Country: US (occurrence: None)
  Receive Date: 20121217
  Receipt Date: 20121217
  Transmission Date: 20130627
  Serious: Yes (Hospitalization)
  Sender: FDA-Public Use
  Company Number: None

PATIENT
  Age: 61 Year
  Sex: Male
  Weight: 103.8 kg

DRUGS (2)
  1. LITHIUM [Suspect]
     Indication: SEXUALLY INAPPROPRIATE BEHAVIOR
     Dosage: 4 TAB Other PO
     Route: 048
     Dates: start: 20111001
  2. LITHIUM [Suspect]
     Indication: HYPOMANIA
     Dosage: 4 TAB Other PO
     Route: 048
     Dates: start: 20111001

REACTIONS (6)
  - Gait disturbance [None]
  - Lethargy [None]
  - Renal failure acute [None]
  - Mental status changes [None]
  - Urinary tract infection [None]
  - Toxicity to various agents [None]
